FAERS Safety Report 11458724 (Version 1)
Quarter: 2015Q3

REPORT INFORMATION
  Report Type: Report from Study
  Country: US (occurrence: US)
  Receive Date: 20150904
  Receipt Date: 20150904
  Transmission Date: 20151125
  Serious: No
  Sender: FDA-Public Use
  Company Number: PHEH2011US010101

PATIENT
  Sex: Female

DRUGS (7)
  1. GLEEVEC [Suspect]
     Active Substance: IMATINIB MESYLATE
     Indication: SOFT TISSUE SARCOMA
     Dosage: 400 MG, DAILY
     Route: 048
     Dates: start: 20110915
  2. SUTENT [Suspect]
     Active Substance: SUNITINIB MALATE
     Indication: PRODUCT USED FOR UNKNOWN INDICATION
     Route: 065
  3. GLEEVEC [Suspect]
     Active Substance: IMATINIB MESYLATE
     Dosage: 400 MG QD
     Route: 048
  4. STIVARGA [Suspect]
     Active Substance: REGORAFENIB
     Indication: PRODUCT USED FOR UNKNOWN INDICATION
     Dosage: 4 DF (4 PILLS)
     Route: 065
  5. STIVARGA [Suspect]
     Active Substance: REGORAFENIB
     Dosage: 3 DF, QD (3 PILLS)
     Route: 065
  6. NEUPOGEN [Concomitant]
     Active Substance: FILGRASTIM
     Indication: PRODUCT USED FOR UNKNOWN INDICATION
     Route: 065
  7. STIVARGA [Suspect]
     Active Substance: REGORAFENIB
     Dosage: 4 DF (4 PILLS)
     Route: 065

REACTIONS (10)
  - Pruritus [Unknown]
  - White blood cell count decreased [Unknown]
  - Nasopharyngitis [Recovering/Resolving]
  - Palmar-plantar erythrodysaesthesia syndrome [Unknown]
  - Periorbital oedema [Unknown]
  - Pyrexia [Unknown]
  - Abdominal discomfort [Unknown]
  - No therapeutic response [Unknown]
  - Wrong technique in product usage process [Unknown]
  - Malaise [Unknown]

NARRATIVE: CASE EVENT DATE: 2011
